FAERS Safety Report 9268088 (Version 1)
Quarter: 2013Q2

REPORT INFORMATION
  Report Type: Spontaneous
  Country: US (occurrence: US)
  Receive Date: 20130502
  Receipt Date: 20130502
  Transmission Date: 20140414
  Serious: No
  Sender: FDA-Public Use
  Company Number: US-ALEXION-A201201554

PATIENT
  Age: 52 Year
  Sex: Male
  Weight: 81.63 kg

DRUGS (7)
  1. SOLIRIS 300MG [Suspect]
     Indication: PAROXYSMAL NOCTURNAL HAEMOGLOBINURIA
     Dosage: 600 MG, QW
     Route: 042
     Dates: start: 20120809
  2. OMEPRAZOLE [Concomitant]
     Indication: GASTROOESOPHAGEAL REFLUX DISEASE
     Dosage: 40 MG, QD
  3. PERCOCET [Concomitant]
     Indication: BACK PAIN
     Dosage: 5/325 MG, 1-2 Q 6 HRS PRN
     Route: 048
  4. HUMALOG [Concomitant]
     Indication: DIABETES MELLITUS
     Dosage: 100 IU, Q AC + HS
     Route: 058
  5. GLUCOPHAGE [Concomitant]
     Indication: DIABETES MELLITUS
     Dosage: UNK
  6. NIASPAN [Concomitant]
     Indication: BLOOD TRIGLYCERIDES INCREASED
     Dosage: 100 MG, QD
  7. LISINOPRIL [Concomitant]
     Dosage: 20 MG, QD

REACTIONS (2)
  - Gastrointestinal viral infection [Unknown]
  - Chills [Unknown]
